FAERS Safety Report 23070398 (Version 2)
Quarter: 2023Q4

REPORT INFORMATION
  Report Type: Spontaneous
  Country: ES (occurrence: ES)
  Receive Date: 20231016
  Receipt Date: 20231128
  Transmission Date: 20240110
  Serious: Yes (Hospitalization)
  Sender: FDA-Public Use
  Company Number: ES-GILEAD-2023-0645954

PATIENT
  Sex: Male
  Weight: 60.3 kg

DRUGS (26)
  1. CARBOPLATIN [Suspect]
     Active Substance: CARBOPLATIN
     Indication: Non-small cell lung cancer metastatic
     Dosage: 759 MG
     Route: 042
     Dates: start: 20230810, end: 20230810
  2. CARBOPLATIN [Suspect]
     Active Substance: CARBOPLATIN
     Dosage: 759 MG, QD
     Route: 042
     Dates: start: 20230831, end: 20230831
  3. CARBOPLATIN [Suspect]
     Active Substance: CARBOPLATIN
     Dosage: 759 MG, QD
     Route: 042
     Dates: start: 20230921, end: 20230921
  4. PACLITAXEL [Suspect]
     Active Substance: PACLITAXEL
     Indication: Non-small cell lung cancer metastatic
     Dosage: 320 MG
     Route: 042
     Dates: start: 20230810, end: 20230810
  5. PACLITAXEL [Suspect]
     Active Substance: PACLITAXEL
     Dosage: 320 MG
     Route: 042
     Dates: start: 20230831, end: 20230831
  6. PACLITAXEL [Suspect]
     Active Substance: PACLITAXEL
     Dosage: 320 MG
     Route: 042
     Dates: start: 20230921, end: 20230921
  7. DOMVANALIMAB [Suspect]
     Active Substance: DOMVANALIMAB
     Indication: Non-small cell lung cancer metastatic
     Dosage: 1200 MG
     Route: 042
     Dates: start: 20230810, end: 20230810
  8. DOMVANALIMAB [Suspect]
     Active Substance: DOMVANALIMAB
     Dosage: 1200 MG
     Route: 042
     Dates: start: 20230831, end: 20230831
  9. DOMVANALIMAB [Suspect]
     Active Substance: DOMVANALIMAB
     Dosage: 1200 MG
     Route: 042
     Dates: start: 20230921, end: 20230921
  10. ZIMBERELIMAB [Suspect]
     Active Substance: ZIMBERELIMAB
     Indication: Non-small cell lung cancer metastatic
     Dosage: 360 MG, QD
     Route: 042
     Dates: start: 20230810, end: 20230810
  11. ZIMBERELIMAB [Suspect]
     Active Substance: ZIMBERELIMAB
     Dosage: 360 MG, QD
     Route: 042
     Dates: start: 20230831, end: 20230831
  12. ZIMBERELIMAB [Suspect]
     Active Substance: ZIMBERELIMAB
     Dosage: 360 MG
     Route: 042
     Dates: start: 20230921, end: 20230921
  13. DEXAMETHASONE [Concomitant]
     Active Substance: DEXAMETHASONE
     Indication: Premedication
     Dosage: UNK
     Route: 042
     Dates: start: 20230831, end: 20230831
  14. DEXAMETHASONE [Concomitant]
     Active Substance: DEXAMETHASONE
     Dosage: UNK
     Route: 042
     Dates: start: 20230921, end: 20230921
  15. LACTULOSE [Concomitant]
     Active Substance: LACTULOSE
     Indication: Prophylaxis
     Dosage: UNK
     Route: 048
  16. DEXCHLORPHENIRAMINE [Concomitant]
     Active Substance: DEXCHLORPHENIRAMINE
     Indication: Premedication
     Dosage: UNK
     Route: 042
     Dates: start: 20230921, end: 20230921
  17. DEXCHLORPHENIRAMINE [Concomitant]
     Active Substance: DEXCHLORPHENIRAMINE
     Dosage: UNK
     Route: 042
     Dates: start: 20230831, end: 20230831
  18. NETUPITANT\PALONOSETRON [Concomitant]
     Active Substance: NETUPITANT\PALONOSETRON
     Indication: Premedication
     Dosage: UNK
     Route: 048
     Dates: start: 20230921, end: 20230921
  19. NETUPITANT\PALONOSETRON [Concomitant]
     Active Substance: NETUPITANT\PALONOSETRON
     Dosage: UNK
     Route: 048
     Dates: start: 20230831, end: 20230831
  20. ONDANSETRON [Concomitant]
     Active Substance: ONDANSETRON
     Indication: Prophylaxis
     Dosage: UNK
     Route: 048
  21. FENTANYL [Concomitant]
     Active Substance: FENTANYL\FENTANYL CITRATE
     Indication: Musculoskeletal chest pain
     Dosage: UNK
     Route: 062
     Dates: start: 20230810
  22. METAMIZOL [Concomitant]
     Active Substance: METAMIZOLE SODIUM
     Indication: Musculoskeletal chest pain
     Dosage: UNK
     Route: 048
  23. MORPHINE [Concomitant]
     Active Substance: MORPHINE
     Indication: Premedication
     Dosage: UNK
     Route: 048
  24. SULPIRIDE [Concomitant]
     Active Substance: SULPIRIDE
     Indication: Prophylaxis
     Dosage: UNK
     Route: 048
  25. FAMOTIDINE [Concomitant]
     Active Substance: FAMOTIDINE
     Indication: Premedication
     Dosage: UNK
     Route: 048
     Dates: start: 20230831, end: 20230831
  26. FAMOTIDINE [Concomitant]
     Active Substance: FAMOTIDINE
     Dosage: UNK
     Route: 048
     Dates: start: 20230921, end: 20230921

REACTIONS (2)
  - Febrile neutropenia [Unknown]
  - Off label use [Unknown]

NARRATIVE: CASE EVENT DATE: 20230810
